FAERS Safety Report 5608876-7 (Version None)
Quarter: 2008Q1

REPORT INFORMATION
  Report Type: 
  Country: None (occurrence: None)
  Receive Date: 20080128
  Receipt Date: 20080128
  Transmission Date: 20080703
  Serious: Yes (Life-Threatening, Disabling)
  Sender: FDA-Public Use
  Company Number: None

PATIENT
  Sex: Female
  Weight: 74.8435 kg

DRUGS (2)
  1. PROVENTIL-HFA [Suspect]
     Dosage: 2 PUFFS EVERY SIX HOURS INHAL
     Route: 055
     Dates: start: 19920302, end: 20080126
  2. FLOVENT HFA [Suspect]
     Dosage: 1 PUFFS EVERY 12 HOURS INHAL
     Route: 055
     Dates: start: 19920302, end: 20080126

REACTIONS (4)
  - CONDITION AGGRAVATED [None]
  - DRUG EFFECT DECREASED [None]
  - NO THERAPEUTIC RESPONSE [None]
  - PHARMACEUTICAL PRODUCT COMPLAINT [None]
